FAERS Safety Report 14267981 (Version 1)
Quarter: 2017Q4

REPORT INFORMATION
  Report Type: Spontaneous
  Country: US (occurrence: None)
  Receive Date: 20171211
  Receipt Date: 20171211
  Transmission Date: 20180321
  Serious: Yes (Hospitalization)
  Sender: FDA-Public Use
  Company Number: None

PATIENT
  Age: 13 Month
  Sex: Male
  Weight: 9 kg

DRUGS (1)
  1. BUPRENORPHINE/NALOXONE [Suspect]
     Active Substance: BUPRENORPHINE\NALOXONE
     Indication: DRUG DEPENDENCE
     Dosage: BUP 8 MG  NALOX 21 MG
     Route: 048
     Dates: start: 20171028

REACTIONS (3)
  - Miosis [None]
  - Depressed level of consciousness [None]
  - Accidental exposure to product by child [None]

NARRATIVE: CASE EVENT DATE: 20171028
